FAERS Safety Report 8254996-0 (Version None)
Quarter: 2012Q1

REPORT INFORMATION
  Report Type: 
  Country: None (occurrence: None)
  Receive Date: 20120329
  Receipt Date: 20120316
  Transmission Date: 20120608
  Serious: No
  Sender: FDA-Public Use
  Company Number: 2012AL000025

PATIENT
  Age: 63 Year
  Sex: Male

DRUGS (16)
  1. FOLOTYN [Suspect]
     Indication: PERIPHERAL T-CELL LYMPHOMA UNSPECIFIED
     Dosage: 40 MG, QW, IV
     Route: 042
     Dates: start: 20120309, end: 20120309
  2. FUROSEMIDE [Concomitant]
  3. PROPIONATE [Concomitant]
  4. SALMETEROL [Concomitant]
  5. SIMVASTATIN [Concomitant]
  6. ALBUTEROL [Concomitant]
  7. FLUTICASONE FUROATE [Concomitant]
  8. METFORMIN HCL [Concomitant]
  9. TERAZOSIN HCL [Concomitant]
  10. MONTELUKAST [Concomitant]
  11. POTASSIUM [Concomitant]
  12. SITAGLIPTIN [Concomitant]
  13. BUPROPION HCL [Concomitant]
  14. LISINOPRIL [Concomitant]
  15. OMEPRAZOLE [Concomitant]
  16. DABIGATRAN [Concomitant]

REACTIONS (8)
  - DIARRHOEA [None]
  - THROMBOCYTOPENIA [None]
  - MUCOSAL INFLAMMATION [None]
  - BLISTER [None]
  - CLOSTRIDIAL INFECTION [None]
  - RENAL FAILURE [None]
  - TUMOUR LYSIS SYNDROME [None]
  - RENAL FAILURE ACUTE [None]
